FAERS Safety Report 15451533 (Version 1)
Quarter: 2018Q3

REPORT INFORMATION
  Report Type: Spontaneous
  Country: US (occurrence: US)
  Receive Date: 20180928
  Receipt Date: 20180928
  Transmission Date: 20181010
  Serious: Yes (Life-Threatening, Disabling)
  Sender: FDA-Public Use
  Company Number: None

PATIENT
  Age: 34 Year
  Sex: Female
  Weight: 68.85 kg

DRUGS (5)
  1. DULOXETINE 60MG [Suspect]
     Active Substance: DULOXETINE
     Indication: DEPRESSION
     Dosage: ?          QUANTITY:1 CAPSULE(S);?
     Route: 048
     Dates: start: 20170601, end: 20180215
  2. LITHIUM. [Concomitant]
     Active Substance: LITHIUM
  3. FISH OIL SUPPLEMENT. [Concomitant]
  4. SEROQUEL [Concomitant]
     Active Substance: QUETIAPINE FUMARATE
  5. PRENATAL VITAMINS [Concomitant]
     Active Substance: VITAMINS

REACTIONS (3)
  - Mania [None]
  - Bipolar disorder [None]
  - Product substitution issue [None]

NARRATIVE: CASE EVENT DATE: 20170801
